FAERS Safety Report 19954371 (Version 2)
Quarter: 2021Q4

REPORT INFORMATION
  Report Type: Spontaneous
  Country: IT (occurrence: IT)
  Receive Date: 20211014
  Receipt Date: 20211027
  Transmission Date: 20220303
  Serious: Yes (Life-Threatening)
  Sender: FDA-Public Use
  Company Number: None

PATIENT
  Age: 86 Year
  Sex: Female
  Weight: 75 kg

DRUGS (5)
  1. CIPROFLOXACIN [Suspect]
     Active Substance: CIPROFLOXACIN
     Indication: Prophylaxis
     Dosage: 400 MG, QD
     Route: 041
  2. BUTHIAZIDE\CANRENOATE POTASSIUM [Concomitant]
     Active Substance: BUTHIAZIDE\CANRENOATE POTASSIUM
     Dosage: 50 MG
  3. MICARDIS [Concomitant]
     Active Substance: TELMISARTAN
  4. PANTOPRAZOLE [Concomitant]
     Active Substance: PANTOPRAZOLE
  5. LACTULOSE [Concomitant]
     Active Substance: LACTULOSE

REACTIONS (3)
  - Cardiac arrest [Recovering/Resolving]
  - Skin reaction [Recovering/Resolving]
  - Urticaria [Recovering/Resolving]

NARRATIVE: CASE EVENT DATE: 20210928
